FAERS Safety Report 4743805-X (Version None)
Quarter: 2005Q3

REPORT INFORMATION
  Report Type: 
  Country: None (occurrence: None)
  Receive Date: 20050809
  Receipt Date: 20050513
  Transmission Date: 20060218
  Serious: No
  Sender: FDA-Public Use
  Company Number: 2005FR-00178

PATIENT
  Age: 52 Year
  Sex: Male

DRUGS (2)
  1. IBUPROFEN [Suspect]
     Indication: INTERVERTEBRAL DISC PROTRUSION
     Dosage: 400MG
     Route: 048
     Dates: start: 20040901, end: 20040928
  2. ACETAMINOPHEN [Concomitant]

REACTIONS (1)
  - JEJUNAL ULCER PERFORATION [None]
